FAERS Safety Report 11784957 (Version 2)
Quarter: 2016Q1

REPORT INFORMATION
  Report Type: Spontaneous
  Country: US (occurrence: US)
  Receive Date: 20151130
  Receipt Date: 20160128
  Transmission Date: 20160525
  Serious: Yes (Hospitalization)
  Sender: FDA-Public Use
  Company Number: US-DRREDDYS-USA/USA/15/0054207

PATIENT
  Age: 30 Year
  Sex: Male

DRUGS (6)
  1. NITROPRUSSIDE [Concomitant]
     Active Substance: NITROPRUSSIDE
     Indication: PRODUCT USED FOR UNKNOWN INDICATION
  2. LABETALOL [Suspect]
     Active Substance: LABETALOL\LABETALOL HYDROCHLORIDE
     Indication: PRODUCT USED FOR UNKNOWN INDICATION
     Route: 048
  3. DILTIAZEM [Concomitant]
     Active Substance: DILTIAZEM
     Indication: PRODUCT USED FOR UNKNOWN INDICATION
  4. METOPROLOL SUCCINATE. [Suspect]
     Active Substance: METOPROLOL SUCCINATE
     Indication: PRODUCT USED FOR UNKNOWN INDICATION
     Route: 048
  5. ESMOLOL [Suspect]
     Active Substance: ESMOLOL HYDROCHLORIDE
     Indication: PRODUCT USED FOR UNKNOWN INDICATION
     Route: 042
  6. CLONIDINE. [Concomitant]
     Active Substance: CLONIDINE
     Indication: PRODUCT USED FOR UNKNOWN INDICATION
     Route: 048

REACTIONS (13)
  - Liver function test abnormal [Recovered/Resolved]
  - Toxicity to various agents [Recovered/Resolved]
  - Intestinal ischaemia [Recovered/Resolved]
  - International normalised ratio increased [Recovered/Resolved]
  - Cardiomyopathy [Recovered/Resolved]
  - Hypoglycaemia [Recovered/Resolved]
  - Acute kidney injury [Recovered/Resolved]
  - Abdominal compartment syndrome [Recovered/Resolved]
  - Ileus [Recovered/Resolved]
  - Septic shock [Recovered/Resolved]
  - Overdose [Recovered/Resolved]
  - Circulatory collapse [Recovered/Resolved]
  - Blood lactic acid increased [Recovered/Resolved]
